FAERS Safety Report 5911102-2 (Version None)
Quarter: 2008Q4

REPORT INFORMATION
  Report Type: 
  Country: None (occurrence: None)
  Receive Date: 20081007
  Receipt Date: 20071212
  Transmission Date: 20090506
  Serious: No
  Sender: FDA-Public Use
  Company Number: US-BRISTOL-MYERS SQUIBB COMPANY-14012595

PATIENT
  Age: 64 Year
  Sex: Female

DRUGS (1)
  1. AVAPRO [Suspect]
     Dates: start: 20071129, end: 20071211

REACTIONS (2)
  - DIZZINESS [None]
  - HYPOTENSION [None]
